FAERS Safety Report 16121868 (Version 1)
Quarter: 2019Q1

REPORT INFORMATION
  Report Type: Spontaneous
  Country: US (occurrence: US)
  Receive Date: 20190327
  Receipt Date: 20190327
  Transmission Date: 20190418
  Serious: Yes (Hospitalization, Other)
  Sender: FDA-Public Use
  Company Number: US-AXELLIA-002366

PATIENT
  Age: 28 Year
  Sex: Female

DRUGS (7)
  1. MIDAZOLAM [Concomitant]
     Active Substance: MIDAZOLAM HYDROCHLORIDE
     Indication: INDUCTION OF ANAESTHESIA
  2. FENTANYL. [Concomitant]
     Active Substance: FENTANYL
     Indication: INDUCTION OF ANAESTHESIA
  3. REMIFENTANIL/REMIFENTANIL HYDROCHLORIDE [Concomitant]
     Indication: MAINTENANCE OF ANAESTHESIA
  4. SUXAMETHONIUM [Concomitant]
     Active Substance: SUCCINYLCHOLINE
     Indication: INDUCTION OF ANAESTHESIA
  5. CEFAZOLIN [Concomitant]
     Active Substance: CEFAZOLIN
     Indication: ANTIBIOTIC PROPHYLAXIS
  6. PROPOFOL. [Concomitant]
     Active Substance: PROPOFOL
     Indication: INDUCTION AND MAINTENANCE OF ANAESTHESIA
  7. BACITRACIN. [Suspect]
     Active Substance: BACITRACIN
     Indication: ANTIBIOTIC THERAPY

REACTIONS (4)
  - Tachycardia [Recovered/Resolved]
  - Pulseless electrical activity [Recovered/Resolved]
  - Hypersensitivity [Recovered/Resolved]
  - Anaphylactic shock [Recovered/Resolved]
